FAERS Safety Report 17180368 (Version 1)
Quarter: 2019Q4

REPORT INFORMATION
  Report Type: Other
  Country: AT (occurrence: AT)
  Receive Date: 20191219
  Receipt Date: 20191219
  Transmission Date: 20200122
  Serious: Yes (Hospitalization)
  Sender: FDA-Public Use
  Company Number: AT-CELLTRION INC.-2019AT027320

PATIENT

DRUGS (11)
  1. ABRAXANE [Suspect]
     Active Substance: PACLITAXEL
     Indication: BREAST CANCER
     Dosage: 177.17 MILLIGRAM, 1/WEEK, MOST RECENT DOSE PRIOR TO THE EVENT: 08/MAY/2018, 16/JAN/2019,
     Route: 042
     Dates: start: 20180416
  2. TAXOL [Suspect]
     Active Substance: PACLITAXEL
     Indication: BREAST CANCER
     Dosage: 147.76 MG, 1 WEEK, LAST DOSE 09/APR/2018
     Route: 042
     Dates: start: 20180328
  3. NAVELBINE [Suspect]
     Active Substance: VINORELBINE TARTRATE
     Indication: BREAST CANCER
     Dosage: 50 MG
     Route: 048
     Dates: start: 20191011
  4. TRASTUZUMAB EMTANSINE [Suspect]
     Active Substance: ADO-TRASTUZUMAB EMTANSINE
     Indication: BREAST CANCER
     Dosage: 230.4 MG EVERY 3 WEEKS, MOST RECENT DOSE PRIOR TO THE EVENT: 28/JUN/2019, 17/MAY/2019
     Route: 042
     Dates: start: 20190131
  5. OCTENISEPT [OCTENIDINE HYDROCHLORIDE;PHENOXYETHANOL] [Concomitant]
     Indication: ONYCHOLYSIS
     Dosage: UNK
     Route: 065
     Dates: start: 20180725
  6. BEPANTHEN [DEXPANTHENOL] [Concomitant]
     Active Substance: DEXPANTHENOL
     Indication: CONJUNCTIVITIS
     Dosage: UNK
     Route: 065
     Dates: start: 20180619
  7. CAL D VITA [Concomitant]
     Dosage: UNK
     Route: 065
     Dates: start: 20190425
  8. BEPANTHEN [DEXPANTHENOL] [Concomitant]
     Active Substance: DEXPANTHENOL
     Dosage: UNK
     Route: 065
     Dates: start: 20180725
  9. PANTOLOC [PANTOPRAZOLE] [Concomitant]
     Active Substance: PANTOPRAZOLE SODIUM
     Dosage: UNK
     Route: 065
     Dates: start: 20191011
  10. PERTUZUMAB. [Suspect]
     Active Substance: PERTUZUMAB
     Indication: BREAST CANCER
     Dosage: 840 MG EVERY 3 WEEKS, MOST RECENT DOSE PRIOR TO THE EVENT: 28/MAR/2018, 14/DEC/2018
     Route: 042
     Dates: start: 20180328
  11. TRASTUZUMAB (UNKNOWN) [Suspect]
     Active Substance: TRASTUZUMAB
     Indication: BREAST CANCER
     Dosage: 600 MG, EVERY 3 WEEKS, MOST RECENT DOSE PRIOR TO THE EVENT: 11/OCT/2019, 28/MAR/2018
     Route: 041
     Dates: start: 20180328

REACTIONS (2)
  - Stomatitis [Recovered/Resolved]
  - Febrile neutropenia [Recovered/Resolved]

NARRATIVE: CASE EVENT DATE: 20191025
